FAERS Safety Report 20779554 (Version 1)
Quarter: 2022Q2

REPORT INFORMATION
  Report Type: Spontaneous
  Country: US (occurrence: US)
  Receive Date: 20220503
  Receipt Date: 20220503
  Transmission Date: 20220721
  Serious: No
  Sender: FDA-Public Use
  Company Number: US-PFIZER INC-202200343943

PATIENT
  Age: 62 Year
  Sex: Male

DRUGS (1)
  1. BOSULIF [Suspect]
     Active Substance: BOSUTINIB MONOHYDRATE
     Dosage: 300 MG, DAILY
     Route: 048
     Dates: start: 20220224

REACTIONS (7)
  - Pain [Unknown]
  - Hot flush [Unknown]
  - Feeling hot [Unknown]
  - Abdominal pain upper [Unknown]
  - Fatigue [Unknown]
  - Myalgia [Unknown]
  - Diarrhoea [Recovered/Resolved]
